FAERS Safety Report 17246817 (Version 1)
Quarter: 2020Q1

REPORT INFORMATION
  Report Type: Spontaneous
  Country: US (occurrence: US)
  Receive Date: 20200108
  Receipt Date: 20200108
  Transmission Date: 20200409
  Serious: No
  Sender: FDA-Public Use
  Company Number: US-ACLARIS THERAPEUTICS-2019US010071

PATIENT
  Age: 34 Year
  Sex: Female

DRUGS (1)
  1. ESKATA [Suspect]
     Active Substance: HYDROGEN PEROXIDE
     Indication: SEBORRHOEIC KERATOSIS
     Dosage: UNK
     Route: 061
     Dates: start: 20190930

REACTIONS (2)
  - Application site discolouration [Not Recovered/Not Resolved]
  - Application site scab [Not Recovered/Not Resolved]

NARRATIVE: CASE EVENT DATE: 20190930
